FAERS Safety Report 6397105-5 (Version None)
Quarter: 2009Q4

REPORT INFORMATION
  Report Type: 
  Country: None (occurrence: None)
  Receive Date: 20091012
  Receipt Date: 20091008
  Transmission Date: 20100525
  Serious: Yes (Other)
  Sender: FDA-Public Use
  Company Number: A0742247A

PATIENT

DRUGS (1)
  1. LAMICTAL [Suspect]
     Indication: DRUG USE FOR UNKNOWN INDICATION
     Dosage: 200MG UNKNOWN
     Route: 048
     Dates: start: 20080801

REACTIONS (3)
  - CONVULSION [None]
  - INCORRECT STORAGE OF DRUG [None]
  - PRODUCT ODOUR ABNORMAL [None]
